FAERS Safety Report 5140557-9 (Version None)
Quarter: 2006Q4

REPORT INFORMATION
  Report Type: 
  Country: None (occurrence: None)
  Receive Date: 20061031
  Receipt Date: 20061024
  Transmission Date: 20070319
  Serious: Yes (Death)
  Sender: FDA-Public Use
  Company Number: US-JNJFOC-20061006088

PATIENT
  Sex: Male
  Weight: 81.65 kg

DRUGS (3)
  1. RISPERDAL [Suspect]
     Indication: DEMENTIA ALZHEIMER'S TYPE
     Route: 048
  2. RISPERDAL [Suspect]
     Indication: PSYCHOTIC DISORDER
     Route: 048
  3. CHEMOTHERAPY [Concomitant]
     Indication: COLON CANCER

REACTIONS (4)
  - DEATH [None]
  - DRUG INEFFECTIVE [None]
  - HALLUCINATION [None]
  - WEIGHT DECREASED [None]
